FAERS Safety Report 4447579-1 (Version None)
Quarter: 2004Q3

REPORT INFORMATION
  Report Type: 
  Country: None (occurrence: None)
  Receive Date: 20040812
  Receipt Date: 20040629
  Transmission Date: 20050211
  Serious: No
  Sender: FDA-Public Use
  Company Number: USA040671358

PATIENT
  Age: 38 Year
  Sex: Male

DRUGS (1)
  1. CIALIS [Suspect]
     Indication: ERECTILE DYSFUNCTION
     Dates: start: 20040401, end: 20040601

REACTIONS (5)
  - LIMB DISCOMFORT [None]
  - PAIN IN EXTREMITY [None]
  - SENSATION OF BLOOD FLOW [None]
  - SENSATION OF PRESSURE [None]
  - THERAPEUTIC RESPONSE DECREASED [None]
